FAERS Safety Report 4614012-6 (Version None)
Quarter: 2005Q1

REPORT INFORMATION
  Report Type: 
  Country: None (occurrence: None)
  Receive Date: 20050321
  Receipt Date: 20050310
  Transmission Date: 20050727
  Serious: Yes (Life-Threatening)
  Sender: FDA-Public Use
  Company Number: FR-ROCHE-398066

PATIENT
  Sex: Female

DRUGS (7)
  1. VALIUM [Suspect]
     Indication: MANIA
     Dates: start: 20050114
  2. LEPONEX [Suspect]
     Indication: MANIA
     Dates: start: 20050114
  3. LEPONEX [Suspect]
     Dates: start: 20040615
  4. LEPONEX [Suspect]
     Dates: start: 20041215
  5. DEPAMIDE [Suspect]
     Indication: MANIA
     Dates: start: 20050114
  6. DEPAMIDE [Suspect]
     Dates: start: 20050124, end: 20050124
  7. DEPAMIDE [Suspect]
     Dates: end: 20040615

REACTIONS (9)
  - APGAR SCORE LOW [None]
  - CAESAREAN SECTION [None]
  - DRUG EXPOSURE DURING PREGNANCY [None]
  - DRUG LEVEL INCREASED [None]
  - HYPOTONIA [None]
  - NEONATAL DISORDER [None]
  - RESPIRATORY FAILURE [None]
  - SOMNOLENCE [None]
  - VOMITING [None]
